FAERS Safety Report 7215295-9 (Version None)
Quarter: 2011Q1

REPORT INFORMATION
  Report Type: 
  Country: None (occurrence: None)
  Receive Date: 20110107
  Receipt Date: 20101229
  Transmission Date: 20110831
  Serious: Yes (Death)
  Sender: FDA-Public Use
  Company Number: GB-NAPPMUNDI-GBR-2010-0007546

PATIENT

DRUGS (1)
  1. BUTRANS [Suspect]
     Indication: DRUG EXPOSURE DURING PREGNANCY
     Dosage: 10 MCG, Q1H
     Route: 064

REACTIONS (1)
  - INTRA-UTERINE DEATH [None]
